FAERS Safety Report 9441048 (Version 1)
Quarter: 2013Q3

REPORT INFORMATION
  Report Type: Spontaneous
  Country: US (occurrence: US)
  Receive Date: 20130805
  Receipt Date: 20130805
  Transmission Date: 20140515
  Serious: No
  Sender: FDA-Public Use
  Company Number: US-009507513-1308USA001906

PATIENT
  Age: 76 Year
  Sex: Male
  Weight: 88.44 kg

DRUGS (3)
  1. MIRALAX [Suspect]
     Indication: PRODUCT USED FOR UNKNOWN INDICATION
     Dosage: 17 G, HS
     Route: 048
     Dates: start: 20130626
  2. MIRALAX [Suspect]
     Dosage: 17 G, HS
     Route: 048
     Dates: start: 20130623
  3. ALEVE [Concomitant]
     Indication: PRODUCT USED FOR UNKNOWN INDICATION
     Dosage: UNK, UNKNOWN

REACTIONS (3)
  - Incorrect drug administration duration [Unknown]
  - Product physical issue [Unknown]
  - Product solubility abnormal [Unknown]
